FAERS Safety Report 21289090 (Version 1)
Quarter: 2022Q3

REPORT INFORMATION
  Report Type: Spontaneous
  Country: US (occurrence: US)
  Receive Date: 20220902
  Receipt Date: 20220902
  Transmission Date: 20221027
  Serious: No
  Sender: FDA-Public Use
  Company Number: US-ABBVIE-22K-163-4373220-00

PATIENT
  Age: 56 Year
  Sex: Female
  Weight: 60.836 kg

DRUGS (3)
  1. RINVOQ [Suspect]
     Active Substance: UPADACITINIB
     Indication: Dermatitis atopic
     Route: 048
     Dates: start: 20220406, end: 20220414
  2. VITAMINS [Concomitant]
     Active Substance: VITAMINS
     Indication: Supplementation therapy
  3. JANSSEN COVID-19 VACCINE [Concomitant]
     Active Substance: AD26.COV2.S
     Indication: COVID-19 immunisation
     Route: 030
     Dates: start: 20211107, end: 20211107

REACTIONS (10)
  - Pain in extremity [Recovering/Resolving]
  - Tremor [Recovered/Resolved]
  - Arthralgia [Recovering/Resolving]
  - Breast enlargement [Unknown]
  - Pain [Unknown]
  - Dizziness [Recovering/Resolving]
  - Dermatitis atopic [Recovered/Resolved]
  - Abdominal pain upper [Unknown]
  - Headache [Recovering/Resolving]
  - Swelling [Recovering/Resolving]

NARRATIVE: CASE EVENT DATE: 20220406
